FAERS Safety Report 19191393 (Version 1)
Quarter: 2021Q2

REPORT INFORMATION
  Report Type: Spontaneous
  Country: GB (occurrence: GB)
  Receive Date: 20210429
  Receipt Date: 20210429
  Transmission Date: 20210717
  Serious: Yes (Hospitalization)
  Sender: FDA-Public Use
  Company Number: GB-HIKMA PHARMACEUTICALS USA INC.-GB-H14001-21-54232

PATIENT
  Age: 50 Year
  Sex: Female
  Weight: 52 kg

DRUGS (8)
  1. LISINOPRIL. [Concomitant]
     Active Substance: LISINOPRIL
     Indication: HYPERTENSION
     Dosage: UNKNOWN
     Route: 065
     Dates: start: 1990
  2. AMLODIPINE [Concomitant]
     Active Substance: AMLODIPINE BESYLATE
     Indication: HYPERTENSION
     Dosage: UNKNOWN
     Route: 065
     Dates: start: 1990
  3. HYDROXYCHLOROQUINE SULFATE. [Concomitant]
     Active Substance: HYDROXYCHLOROQUINE SULFATE
     Indication: SYSTEMIC LUPUS ERYTHEMATOSUS
     Dosage: UNKNOWN
     Route: 065
     Dates: start: 1990
  4. MYCOPHENOLATE MOFETIL. [Concomitant]
     Active Substance: MYCOPHENOLATE MOFETIL
     Indication: CHRONIC KIDNEY DISEASE
     Dosage: UNKNOWN
     Route: 065
     Dates: start: 2018
  5. LEVOTHYROXINE. [Concomitant]
     Active Substance: LEVOTHYROXINE
     Indication: HYPOTHYROIDISM
     Dosage: UNKNOWN
     Route: 065
     Dates: start: 2010
  6. PFIZER?BIONTECH COVID?19 VACCINE [Suspect]
     Active Substance: TOZINAMERAN
     Indication: PRODUCT USED FOR UNKNOWN INDICATION
     Dosage: DOSE 1
     Route: 065
     Dates: start: 20210203
  7. PREDNISOLONE. [Concomitant]
     Active Substance: PREDNISOLONE
     Indication: SYSTEMIC LUPUS ERYTHEMATOSUS
     Dosage: UNKNOWN
     Route: 065
     Dates: start: 2009
  8. ACYCLOVIR. [Suspect]
     Active Substance: ACYCLOVIR
     Indication: RENAL IMPAIRMENT
     Dosage: UNKNOWN
     Route: 065

REACTIONS (9)
  - Fatigue [Recovering/Resolving]
  - Decreased appetite [Unknown]
  - Vision blurred [Recovering/Resolving]
  - Rash [Unknown]
  - Herpes zoster [Recovered/Resolved with Sequelae]
  - Headache [Unknown]
  - Malaise [Recovering/Resolving]
  - Neuralgia [Recovering/Resolving]
  - Eye infection [Unknown]

NARRATIVE: CASE EVENT DATE: 20210217
